FAERS Safety Report 6625807-1 (Version None)
Quarter: 2010Q1

REPORT INFORMATION
  Report Type: 
  Country: None (occurrence: None)
  Receive Date: 20100310
  Receipt Date: 20100301
  Transmission Date: 20100710
  Serious: Yes (Hospitalization, Other)
  Sender: FDA-Public Use
  Company Number: US-MERCK-0707USA00980

PATIENT
  Age: 38 Year
  Sex: Female
  Weight: 110 kg

DRUGS (6)
  1. FOSAMAX [Suspect]
     Indication: OSTEOPOROSIS
     Route: 048
     Dates: start: 20020406, end: 20061229
  2. FUROSEMIDE [Concomitant]
     Indication: FLUID RETENTION
     Route: 048
     Dates: start: 19990101
  3. PLAQUENIL [Concomitant]
     Indication: SYSTEMIC LUPUS ERYTHEMATOSUS
     Route: 065
     Dates: start: 19980101
  4. ACETAMINOPHEN AND HYDROCODONE BITARTRATE [Concomitant]
     Indication: PAIN
     Route: 065
     Dates: start: 20010101
  5. ATIVAN [Concomitant]
     Indication: ANXIETY
     Route: 065
     Dates: start: 20000101
  6. TOPROL-XL [Concomitant]
     Indication: HYPERTENSION
     Route: 065
     Dates: start: 19950101

REACTIONS (34)
  - ANGER [None]
  - ANXIETY [None]
  - ARTHRALGIA [None]
  - ARTHROPATHY [None]
  - BONE LESION [None]
  - CHONDROMALACIA [None]
  - CONTUSION [None]
  - DEPRESSION [None]
  - DEVICE RELATED INFECTION [None]
  - EATING DISORDER [None]
  - EPSTEIN-BARR VIRUS INFECTION [None]
  - FALL [None]
  - FIBROMYALGIA [None]
  - FIBROSIS [None]
  - FOOD POISONING [None]
  - FOOT FRACTURE [None]
  - IRON DEFICIENCY [None]
  - MASTICATION DISORDER [None]
  - MENISCUS LESION [None]
  - NAUSEA [None]
  - NIGHTMARE [None]
  - OSTEOARTHRITIS [None]
  - OSTEOMYELITIS [None]
  - OSTEONECROSIS [None]
  - OSTEOPOROSIS [None]
  - PAIN [None]
  - PERIODONTITIS [None]
  - ROAD TRAFFIC ACCIDENT [None]
  - SJOGREN'S SYNDROME [None]
  - SLEEP DISORDER [None]
  - TOOTH LOSS [None]
  - VASCULITIS [None]
  - WEIGHT DECREASED [None]
  - WEST NILE VIRAL INFECTION [None]
